FAERS Safety Report 4797312-9 (Version None)
Quarter: 2005Q3

REPORT INFORMATION
  Report Type: 
  Country: None (occurrence: None)
  Receive Date: 20050930
  Receipt Date: 20050308
  Transmission Date: 20060218
  Serious: Yes (Death)
  Sender: FDA-Public Use
  Company Number: HQWYE887908MAR05

PATIENT
  Age: 8 Year

DRUGS (1)
  1. CORDARONE [Suspect]
     Dosage: ^100 MG, IV PUSH^, INTRAVENOUS
     Route: 042

REACTIONS (1)
  - ARRHYTHMIA [None]
